FAERS Safety Report 8969792 (Version 4)
Quarter: 2013Q1

REPORT INFORMATION
  Report Type: Report from Study
  Country: AU (occurrence: AU)
  Receive Date: 20121217
  Receipt Date: 20130104
  Transmission Date: 20140127
  Serious: Yes (Hospitalization, Other)
  Sender: FDA-Public Use
  Company Number: AU-VERTEX PHARMACEUTICALS INC.-2012-026269

PATIENT
  Age: 48 None
  Sex: Male

DRUGS (5)
  1. VX-950 (TELAPREVIR) [Suspect]
     Indication: HEPATITIS C
     Dosage: 750 MG, TID
     Route: 048
     Dates: start: 20121123
  2. PEGINTERFERON ALFA-2B [Suspect]
     Indication: PRODUCT USED FOR UNKNOWN INDICATION
     Dosage: 180 ?G, QW
     Route: 058
     Dates: start: 20121123
  3. PEGINTERFERON ALFA-2B [Suspect]
     Indication: HEPATITIS C
  4. RIBAVIRIN [Suspect]
     Indication: PRODUCT USED FOR UNKNOWN INDICATION
     Dosage: 1200 MG, UNK
     Route: 065
     Dates: start: 20121123
  5. RIBAVIRIN [Suspect]
     Indication: HEPATITIS C

REACTIONS (13)
  - Pyrexia [Not Recovered/Not Resolved]
  - Abdominal pain [Not Recovered/Not Resolved]
  - Cardiac murmur [Unknown]
  - Chest discomfort [Unknown]
  - Ascites [Recovered/Resolved]
  - Gastrooesophageal reflux disease [Unknown]
  - Transaminases increased [Unknown]
  - Hepatic failure [Not Recovered/Not Resolved]
  - Blood bilirubin increased [Unknown]
  - Oedema peripheral [Recovered/Resolved]
  - Diarrhoea [Not Recovered/Not Resolved]
  - Platelet count decreased [Not Recovered/Not Resolved]
  - Gastrointestinal viral infection [Unknown]
